FAERS Safety Report 7900495-2 (Version None)
Quarter: 2011Q4

REPORT INFORMATION
  Report Type: 
  Country: None (occurrence: None)
  Receive Date: 20111108
  Receipt Date: 20111025
  Transmission Date: 20120403
  Serious: Yes (Death, Hospitalization)
  Sender: FDA-Public Use
  Company Number: US-MYLANLABS-2011S1022486

PATIENT
  Age: 49 Year
  Sex: Male

DRUGS (9)
  1. INSULIN [Suspect]
     Indication: CARDIOGENIC SHOCK
     Route: 040
  2. INSULIN [Suspect]
     Dosage: 80-250 IU/H
     Route: 041
  3. QUETIAPINE [Suspect]
     Indication: OVERDOSE
     Route: 048
  4. LISINOPRIL [Suspect]
     Indication: OVERDOSE
     Route: 048
  5. NOREPINEPHRINE BITARTRATE [Suspect]
     Indication: BLOOD PRESSURE DECREASED
     Dosage: 12-14 MCG/MIN
     Route: 065
  6. DIPHENHYDRAMINE HCL [Suspect]
     Indication: OVERDOSE
     Route: 048
  7. DEXTROSE [Concomitant]
     Dosage: TOTAL DOSE ACCORDING TO TABLE: 1509G
     Route: 065
  8. BUPROPION HCL [Suspect]
     Indication: OVERDOSE
     Route: 048
  9. METOPROLOL [Suspect]
     Indication: OVERDOSE
     Route: 048

REACTIONS (5)
  - HYPOTENSION [None]
  - CARDIOGENIC SHOCK [None]
  - OVERDOSE [None]
  - CARDIAC ARREST [None]
  - HYPOKALAEMIA [None]
